FAERS Safety Report 14000827 (Version 2)
Quarter: 2017Q4

REPORT INFORMATION
  Report Type: Spontaneous
  Country: US (occurrence: US)
  Receive Date: 20170922
  Receipt Date: 20171121
  Transmission Date: 20180321
  Serious: Yes (Hospitalization)
  Sender: FDA-Public Use
  Company Number: US-JNJFOC-20170715526

PATIENT
  Age: 56 Year
  Sex: Male

DRUGS (21)
  1. XARELTO [Suspect]
     Active Substance: RIVAROXABAN
     Indication: DEEP VEIN THROMBOSIS
     Dosage: 15MG,20 MG
     Route: 048
     Dates: start: 201510, end: 201511
  2. XARELTO [Suspect]
     Active Substance: RIVAROXABAN
     Indication: ISCHAEMIA
     Route: 048
     Dates: start: 201511, end: 201512
  3. CARVEDILOL. [Concomitant]
     Active Substance: CARVEDILOL
     Indication: HYPERTENSION
     Route: 065
  4. ASPIRIN. [Suspect]
     Active Substance: ASPIRIN
     Indication: ANTICOAGULANT THERAPY
     Route: 048
     Dates: end: 201510
  5. XARELTO [Suspect]
     Active Substance: RIVAROXABAN
     Indication: DEEP VEIN THROMBOSIS
     Route: 048
     Dates: start: 201511, end: 201512
  6. XARELTO [Suspect]
     Active Substance: RIVAROXABAN
     Indication: DEEP VEIN THROMBOSIS
     Dosage: 15MG,20 MG
     Route: 048
     Dates: start: 201509, end: 2015
  7. ASPIRIN. [Suspect]
     Active Substance: ASPIRIN
     Indication: ANTICOAGULANT THERAPY
     Route: 048
     Dates: start: 2015
  8. ASPIRIN. [Suspect]
     Active Substance: ASPIRIN
     Indication: ANGIOPATHY
     Route: 048
     Dates: start: 2015
  9. ASPIRIN. [Suspect]
     Active Substance: ASPIRIN
     Indication: ANGIOPATHY
     Route: 048
     Dates: end: 201510
  10. PRADAXA [Suspect]
     Active Substance: DABIGATRAN ETEXILATE MESYLATE
     Indication: VASCULAR OCCLUSION
     Route: 065
     Dates: end: 201511
  11. PRADAXA [Suspect]
     Active Substance: DABIGATRAN ETEXILATE MESYLATE
     Indication: ANGIOPATHY
     Route: 065
     Dates: end: 201511
  12. NIFEDIPINE. [Concomitant]
     Active Substance: NIFEDIPINE
     Indication: HYPERTENSION
     Route: 065
  13. ASPIRIN. [Suspect]
     Active Substance: ASPIRIN
     Indication: VASCULAR OCCLUSION
     Route: 048
     Dates: start: 2015
  14. ASPIRIN. [Suspect]
     Active Substance: ASPIRIN
     Indication: VASCULAR OCCLUSION
     Route: 048
     Dates: end: 201510
  15. CLONIDINE. [Concomitant]
     Active Substance: CLONIDINE
     Indication: HYPERTENSION
     Route: 065
  16. RAMIPRIL. [Concomitant]
     Active Substance: RAMIPRIL
     Indication: HYPERTENSION
     Route: 065
  17. TRAZODONE [Concomitant]
     Active Substance: TRAZODONE HYDROCHLORIDE
     Indication: MUSCLE SPASMS
     Route: 065
  18. PLAVIX [Suspect]
     Active Substance: CLOPIDOGREL BISULFATE
     Indication: THROMBOSIS PROPHYLAXIS
     Route: 065
     Dates: start: 2015, end: 201511
  19. XARELTO [Suspect]
     Active Substance: RIVAROXABAN
     Indication: ISCHAEMIA
     Dosage: 15MG,20 MG
     Route: 048
     Dates: start: 201509, end: 2015
  20. XARELTO [Suspect]
     Active Substance: RIVAROXABAN
     Indication: ISCHAEMIA
     Dosage: 15MG,20 MG
     Route: 048
     Dates: start: 201510, end: 201511
  21. CRESTOR [Concomitant]
     Active Substance: ROSUVASTATIN CALCIUM
     Indication: HYPERLIPIDAEMIA
     Route: 065

REACTIONS (1)
  - Epistaxis [Recovered/Resolved]

NARRATIVE: CASE EVENT DATE: 20151019
